FAERS Safety Report 5655741-5 (Version None)
Quarter: 2008Q1

REPORT INFORMATION
  Report Type: 
  Country: None (occurrence: None)
  Receive Date: 20080307
  Receipt Date: 20080226
  Transmission Date: 20080703
  Serious: Yes (Other)
  Sender: FDA-Public Use
  Company Number: US-PFIZER INC-2007101549

PATIENT
  Sex: Male
  Weight: 81.6 kg

DRUGS (9)
  1. LYRICA [Suspect]
     Indication: NERVE COMPRESSION
     Route: 048
  2. LYRICA [Suspect]
     Indication: NECK PAIN
  3. LYRICA [Suspect]
     Indication: PAIN IN EXTREMITY
  4. LYRICA [Suspect]
     Indication: HYPOAESTHESIA
  5. LYRICA [Suspect]
     Indication: PARAESTHESIA
  6. LOTREL [Concomitant]
  7. PAXIL [Concomitant]
  8. SKELAXIN [Concomitant]
  9. VICODIN [Concomitant]

REACTIONS (5)
  - FATIGUE [None]
  - GAIT DISTURBANCE [None]
  - SOMNOLENCE [None]
  - TINNITUS [None]
  - VISION BLURRED [None]
